FAERS Safety Report 6854318-3 (Version None)
Quarter: 2010Q3

REPORT INFORMATION
  Report Type: 
  Country: None (occurrence: None)
  Receive Date: 20100717
  Receipt Date: 20080102
  Transmission Date: 20110219
  Serious: No
  Sender: FDA-Public Use
  Company Number: US-PFIZER INC-2008001395

PATIENT
  Sex: Female
  Weight: 84.09 kg

DRUGS (8)
  1. CHANTIX [Suspect]
     Indication: SMOKING CESSATION THERAPY
     Dates: start: 20071230
  2. SKELAXIN [Concomitant]
  3. BACLOFEN [Concomitant]
  4. OXYCONTIN [Concomitant]
  5. CELEBREX [Concomitant]
  6. OXYCODONE HCL [Concomitant]
  7. NICOTROL [Concomitant]
  8. ALBUTEROL [Concomitant]

REACTIONS (1)
  - ABDOMINAL DISCOMFORT [None]
